FAERS Safety Report 4628808-8 (Version None)
Quarter: 2005Q2

REPORT INFORMATION
  Report Type: 
  Country: None (occurrence: None)
  Receive Date: 20050406
  Receipt Date: 20050321
  Transmission Date: 20051028
  Serious: Yes (Hospitalization)
  Sender: FDA-Public Use
  Company Number: DSA_60457_2004

PATIENT
  Age: 17 Year
  Sex: Male

DRUGS (2)
  1. DIASTAT [Suspect]
     Dosage: DF
     Dates: start: 20041104
  2. METHADONE HCL [Suspect]
     Dosage: DF
     Dates: start: 20041104

REACTIONS (3)
  - INTENTIONAL MISUSE [None]
  - MEDICATION ERROR [None]
  - SELF-MEDICATION [None]
